FAERS Safety Report 4780377-8 (Version None)
Quarter: 2005Q3

REPORT INFORMATION
  Report Type: 
  Country: None (occurrence: None)
  Receive Date: 20050926
  Receipt Date: 20050926
  Transmission Date: 20060218
  Serious: Yes (Hospitalization)
  Sender: FDA-Public Use
  Company Number: None

PATIENT
  Age: 82 Year
  Sex: Female

DRUGS (1)
  1. ATENOLOL [Suspect]
     Indication: MYOCARDIAL INFARCTION
     Dosage: 25MG   BID   PO
     Route: 048
     Dates: start: 20050514, end: 20050518

REACTIONS (3)
  - BLOOD PRESSURE ORTHOSTATIC ABNORMAL [None]
  - BRADYCARDIA [None]
  - DIZZINESS [None]
